FAERS Safety Report 11357486 (Version 1)
Quarter: 2015Q3

REPORT INFORMATION
  Report Type: Spontaneous
  Country: US (occurrence: US)
  Receive Date: 20150803
  Receipt Date: 20150803
  Transmission Date: 20151125
  Serious: No
  Sender: FDA-Public Use
  Company Number: US-ELI_LILLY_AND_COMPANY-US201404005489

PATIENT
  Sex: Male

DRUGS (10)
  1. STRATTERA [Suspect]
     Active Substance: ATOMOXETINE HYDROCHLORIDE
     Indication: PRODUCT USED FOR UNKNOWN INDICATION
     Dosage: 10 MG, QD
     Route: 048
     Dates: start: 201402
  2. STRATTERA [Interacting]
     Active Substance: ATOMOXETINE HYDROCHLORIDE
     Dosage: 25 MG, QD
     Route: 065
  3. STRATTERA [Interacting]
     Active Substance: ATOMOXETINE HYDROCHLORIDE
     Dosage: 40 MG, QD
     Route: 065
  4. TYLENOL                            /00724201/ [Concomitant]
  5. STRATTERA [Interacting]
     Active Substance: ATOMOXETINE HYDROCHLORIDE
     Dosage: 18 MG, QD
     Route: 065
  6. STRATTERA [Interacting]
     Active Substance: ATOMOXETINE HYDROCHLORIDE
     Dosage: 80 MG, QD
     Route: 065
  7. STRATTERA [Interacting]
     Active Substance: ATOMOXETINE HYDROCHLORIDE
     Dosage: 10 MG 2 OR THREE CAPSULES EACH DAY, UNK
     Dates: start: 20140410, end: 20140413
  8. ADVIL [Concomitant]
     Active Substance: IBUPROFEN
  9. STRATTERA [Interacting]
     Active Substance: ATOMOXETINE HYDROCHLORIDE
     Dosage: 40 MG, BID
     Route: 065
  10. SUBOXONE [Interacting]
     Active Substance: BUPRENORPHINE HYDROCHLORIDE\NALOXONE HYDROCHLORIDE
     Indication: PRODUCT USED FOR UNKNOWN INDICATION
     Dosage: UNK, UNKNOWN
     Route: 065

REACTIONS (3)
  - Drug interaction [Recovering/Resolving]
  - Hyperhidrosis [Recovering/Resolving]
  - Intentional product misuse [Unknown]
